FAERS Safety Report 8376503-4 (Version None)
Quarter: 2012Q2

REPORT INFORMATION
  Report Type: 
  Country: None (occurrence: None)
  Receive Date: 20120522
  Receipt Date: 20120515
  Transmission Date: 20120825
  Serious: Yes (Disabling)
  Sender: FDA-Public Use
  Company Number: NZ-B.I. PHARMACEUTICALS,INC./RIDGEFIELD-2012-AU-00693AU

PATIENT
  Sex: Female
  Weight: 73 kg

DRUGS (8)
  1. OMEPRAZOLE [Concomitant]
     Dosage: 20 MG
  2. METOPROLOL SUCCINATE [Concomitant]
     Dosage: 95 MG MANE, 47.4 MG NOCTE
  3. CANDESARTAN CILEXETIL [Concomitant]
     Dosage: 32 MG
  4. PRADAXA [Suspect]
     Indication: CEREBROVASCULAR ACCIDENT PROPHYLAXIS
     Dosage: 300 MG
     Dates: start: 20111003, end: 20111027
  5. FUROSEMIDE [Concomitant]
     Dosage: 40 MG
  6. AMLODIPINE BESYLATE [Concomitant]
     Dosage: 5 MG
  7. SPAN-K [Concomitant]
     Dosage: 1 DAILY
  8. VYTORIN 10 PLUS [Concomitant]
     Dosage: 20 MG

REACTIONS (8)
  - FATIGUE [None]
  - RASH [None]
  - DIARRHOEA [None]
  - MALAISE [None]
  - FLUSHING [None]
  - RECTAL HAEMORRHAGE [None]
  - HEADACHE [None]
  - COUGH [None]
